FAERS Safety Report 8625857-X (Version None)
Quarter: 2012Q3

REPORT INFORMATION
  Report Type: 
  Country: None (occurrence: None)
  Receive Date: 20120827
  Receipt Date: 20120813
  Transmission Date: 20120928
  Serious: Yes (Other)
  Sender: FDA-Public Use
  Company Number: IT-MYLANLABS-2012S1017127

PATIENT
  Age: 47 Year
  Sex: Male

DRUGS (1)
  1. OLANZAPINE [Suspect]
     Indication: DEPRESSION
     Route: 048
     Dates: start: 20120301, end: 20120330

REACTIONS (1)
  - PSYCHOTIC DISORDER [None]
